FAERS Safety Report 4396511-8 (Version None)
Quarter: 2004Q3

REPORT INFORMATION
  Report Type: 
  Country: None (occurrence: None)
  Receive Date: 20040709
  Receipt Date: 20040624
  Transmission Date: 20050211
  Serious: Yes (Other)
  Sender: FDA-Public Use
  Company Number: FR-JNJFOC-20040606675

PATIENT
  Age: 80 Year
  Sex: Male

DRUGS (3)
  1. REMINYL [Suspect]
     Indication: DRUG USE FOR UNKNOWN INDICATION
     Dosage: ORAL
     Route: 048
  2. CORDARONE [Concomitant]
  3. CALCIUM INHIBITOR (CALCIUM CHANNEL BLOCKERS) [Concomitant]

REACTIONS (2)
  - CYTOLYTIC HEPATITIS [None]
  - GALLBLADDER DISORDER [None]
